FAERS Safety Report 11125770 (Version 1)
Quarter: 2015Q2

REPORT INFORMATION
  Report Type: Spontaneous
  Country: US (occurrence: US)
  Receive Date: 20150520
  Receipt Date: 20150520
  Transmission Date: 20150821
  Serious: No
  Sender: FDA-Public Use
  Company Number: US-SA-2014SA152134

PATIENT
  Age: 61 Year
  Sex: Male

DRUGS (1)
  1. ELOXATIN [Suspect]
     Active Substance: OXALIPLATIN
     Indication: COLON CANCER METASTATIC
     Route: 065
     Dates: start: 20141003

REACTIONS (4)
  - Infusion site pain [Not Recovered/Not Resolved]
  - Infusion site induration [Not Recovered/Not Resolved]
  - Infusion site extravasation [Not Recovered/Not Resolved]
  - Injected limb mobility decreased [Not Recovered/Not Resolved]

NARRATIVE: CASE EVENT DATE: 20141003
